FAERS Safety Report 18563296 (Version 1)
Quarter: 2020Q4

REPORT INFORMATION
  Report Type: Spontaneous
  Country: US (occurrence: US)
  Receive Date: 20201201
  Receipt Date: 20201201
  Transmission Date: 20210114
  Serious: Yes (Hospitalization, Other)
  Sender: FDA-Public Use
  Company Number: US-ROCHE-2722737

PATIENT
  Age: 83 Year
  Sex: Male
  Weight: 97.25 kg

DRUGS (6)
  1. NIFEDIPINE. [Concomitant]
     Active Substance: NIFEDIPINE
     Dates: start: 20201006
  2. ESBRIET [Suspect]
     Active Substance: PIRFENIDONE
     Indication: IDIOPATHIC PULMONARY FIBROSIS
     Route: 048
     Dates: start: 2018
  3. VALSARTAN. [Concomitant]
     Active Substance: VALSARTAN
     Indication: BLOOD PRESSURE MEASUREMENT
     Route: 048
     Dates: start: 202010
  4. ISOSORBIDE MONONITRATE ER [Concomitant]
     Active Substance: ISOSORBIDE MONONITRATE
     Indication: BLOOD PRESSURE MEASUREMENT
     Route: 048
     Dates: start: 20201006
  5. NIFEDIPINE. [Concomitant]
     Active Substance: NIFEDIPINE
     Indication: BLOOD PRESSURE MEASUREMENT
     Dates: start: 20201006
  6. FLUCONAZOLE. [Concomitant]
     Active Substance: FLUCONAZOLE
     Dates: start: 202003

REACTIONS (13)
  - Feeling abnormal [Unknown]
  - Productive cough [Not Recovered/Not Resolved]
  - Amnesia [Unknown]
  - Pruritus [Unknown]
  - Body height decreased [Unknown]
  - Insomnia [Not Recovered/Not Resolved]
  - Confusional state [Unknown]
  - Reading disorder [Unknown]
  - Cardiac failure congestive [Unknown]
  - Pulmonary oedema [Unknown]
  - Blood pressure inadequately controlled [Unknown]
  - Dyspnoea [Recovered/Resolved]
  - Grip strength decreased [Unknown]

NARRATIVE: CASE EVENT DATE: 20201006
